FAERS Safety Report 8494776-4 (Version None)
Quarter: 2012Q3

REPORT INFORMATION
  Report Type: 
  Country: None (occurrence: None)
  Receive Date: 20120709
  Receipt Date: 20120629
  Transmission Date: 20120928
  Serious: Yes (Other)
  Sender: FDA-Public Use
  Company Number: BR-ASTRAZENECA-2012SE44440

PATIENT
  Age: 60 Year
  Sex: Female
  Weight: 60 kg

DRUGS (7)
  1. PANTOPRAZOLE [Concomitant]
     Indication: DYSPEPSIA
     Dates: start: 20070101
  2. SYNTHROID [Concomitant]
     Dates: start: 20070101
  3. ZETSIM [Concomitant]
     Dates: start: 20040101
  4. INDAPEN [Concomitant]
     Indication: HYPERTENSION
     Dates: start: 20070101
  5. ARIMIDEX [Suspect]
     Indication: BREAST CANCER
     Dosage: DAILY
     Route: 048
     Dates: start: 20100101
  6. UNKNOWN [Concomitant]
     Indication: DEPRESSION
     Dates: start: 20020101
  7. LIPLESS [Concomitant]
     Dates: start: 20040101

REACTIONS (3)
  - ARTHRALGIA [None]
  - DIABETES MELLITUS [None]
  - FATIGUE [None]
